FAERS Safety Report 10927753 (Version 1)
Quarter: 2015Q1

REPORT INFORMATION
  Report Type: Spontaneous
  Country: GB (occurrence: GB)
  Receive Date: 20150319
  Receipt Date: 20150319
  Transmission Date: 20150721
  Serious: Yes (Other)
  Sender: FDA-Public Use
  Company Number: GB-AUROBINDO-AUR-APL-2015-02275

PATIENT
  Age: 54 Year
  Sex: Female
  Weight: 65.5 kg

DRUGS (2)
  1. RIBAVIRIN TABLET [Suspect]
     Active Substance: RIBAVIRIN
     Indication: HEPATITIS C
     Dosage: 1000 MG, TWO TIMES A DAY
     Route: 048
     Dates: start: 20141202, end: 20150206
  2. PEGINTERFERON ALFA-2B [Suspect]
     Active Substance: PEGINTERFERON ALFA-2B
     Indication: HEPATITIS C
     Dosage: 180 ?G, EVERY WEEK
     Route: 058
     Dates: start: 20141202, end: 20150206

REACTIONS (6)
  - Anaemia [Unknown]
  - Haemoglobin decreased [Unknown]
  - Neutropenia [Unknown]
  - Product quality issue [Unknown]
  - Viral load increased [Unknown]
  - Drug ineffective [Not Recovered/Not Resolved]

NARRATIVE: CASE EVENT DATE: 20150127
